FAERS Safety Report 16799816 (Version 1)
Quarter: 2019Q4

REPORT INFORMATION
  Report Type: Spontaneous
  Country: US (occurrence: US)
  Receive Date: 20190912
  Receipt Date: 20190912
  Transmission Date: 20200122
  Serious: Yes (Other)
  Sender: FDA-Public Use
  Company Number: None

PATIENT
  Sex: Male

DRUGS (2)
  1. TOMS NATURALLY DRY ANTIPERSPIRANT DEODORANT - FRESH MEADOW WETNESS PROTECTION [Suspect]
     Active Substance: ALUMINUM CHLOROHYDRATE
  2. TOM^S OF MAINE DEODORANT STICK NATURAL UNSPECIFIED [Suspect]
     Active Substance: COSMETICS
     Indication: PRODUCT USED FOR UNKNOWN INDICATION

REACTIONS (1)
  - Prostate cancer [None]
